FAERS Safety Report 14318631 (Version 10)
Quarter: 2019Q2

REPORT INFORMATION
  Report Type: Report from Study
  Country: NL (occurrence: NL)
  Receive Date: 20171222
  Receipt Date: 20190617
  Transmission Date: 20190711
  Serious: Yes (Hospitalization)
  Sender: FDA-Public Use
  Company Number: NL-ROCHE-2042573

PATIENT
  Age: 39 Year
  Sex: Male
  Weight: 98 kg

DRUGS (17)
  1. OBINUTUZUMAB. [Suspect]
     Active Substance: OBINUTUZUMAB
     Indication: CHRONIC LYMPHOCYTIC LEUKAEMIA
     Dosage: LAST DOSE 1000 MG PRIOR TO SAE ON 21/NOV/2017
     Route: 042
     Dates: start: 20170926, end: 20180306
  2. FORLAX [Concomitant]
     Active Substance: POLYETHYLENE GLYCOL 4000
     Route: 048
  3. METOCLOPRAMIDE. [Concomitant]
     Active Substance: METOCLOPRAMIDE
     Route: 065
     Dates: start: 20180227
  4. NADROPARINE [Concomitant]
     Active Substance: NADROPARIN
     Dosage: 1520 IE
     Route: 058
     Dates: start: 20171205
  5. VINBLASTINE [Suspect]
     Active Substance: VINBLASTINE
     Indication: PRODUCT USED FOR UNKNOWN INDICATION
     Route: 065
  6. FILGRASTIM [Concomitant]
     Active Substance: FILGRASTIM
     Route: 058
     Dates: start: 20171211, end: 20171221
  7. PARACETAMOL [Concomitant]
     Active Substance: ACETAMINOPHEN
     Route: 048
     Dates: start: 20171219, end: 20171219
  8. LANSOPRAZOL [Concomitant]
     Active Substance: LANSOPRAZOLE
     Route: 048
  9. ESOMEPRAZOL [ESOMEPRAZOLE] [Concomitant]
     Route: 048
     Dates: start: 20171219, end: 20171222
  10. FENTANYL. [Concomitant]
     Active Substance: FENTANYL
     Route: 050
     Dates: start: 20180115
  11. BLEOMYCIN [Suspect]
     Active Substance: BLEOMYCIN SULFATE
     Indication: PRODUCT USED FOR UNKNOWN INDICATION
     Route: 065
  12. DACARBAZINE. [Suspect]
     Active Substance: DACARBAZINE
     Indication: PRODUCT USED FOR UNKNOWN INDICATION
     Route: 065
  13. VENETOCLAX. [Suspect]
     Active Substance: VENETOCLAX
     Indication: CHRONIC LYMPHOCYTIC LEUKAEMIA
     Dosage: LAST DOSE 400 MG PRIOR TO SAE ON 21/NOV/2017
     Route: 065
     Dates: start: 20171017, end: 20180418
  14. DOXORUBICIN [Suspect]
     Active Substance: DOXORUBICIN
     Indication: PRODUCT USED FOR UNKNOWN INDICATION
     Route: 065
  15. PARACETAMOL [Concomitant]
     Active Substance: ACETAMINOPHEN
     Route: 048
  16. METOCLOPRAMIDE. [Concomitant]
     Active Substance: METOCLOPRAMIDE
     Route: 048
     Dates: start: 20171115, end: 20180115
  17. ESOMEPRAZOL [ESOMEPRAZOLE] [Concomitant]
     Route: 048
     Dates: start: 20180227

REACTIONS (7)
  - Diffuse large B-cell lymphoma [Not Recovered/Not Resolved]
  - Abdominal pain [Recovered/Resolved]
  - Numb chin syndrome [Recovered/Resolved]
  - Febrile neutropenia [Recovered/Resolved]
  - Anal abscess [Recovered/Resolved]
  - Appendicitis [Recovered/Resolved]
  - Febrile neutropenia [Recovered/Resolved]

NARRATIVE: CASE EVENT DATE: 20171212
